FAERS Safety Report 6286248-2 (Version None)
Quarter: 2009Q3

REPORT INFORMATION
  Report Type: 
  Country: None (occurrence: None)
  Receive Date: 20090728
  Receipt Date: 20090720
  Transmission Date: 20100115
  Serious: Yes (Other)
  Sender: FDA-Public Use
  Company Number: GB-BAXTER-2009BH011775

PATIENT
  Age: 70 Year
  Sex: Male

DRUGS (10)
  1. HEPARIN [Suspect]
     Indication: MYOCARDIAL INFARCTION
     Route: 042
  2. HEPARIN [Suspect]
     Route: 042
  3. CLOPIDOGREL [Suspect]
     Indication: DRUG USE FOR UNKNOWN INDICATION
     Route: 065
  4. ASPIRIN [Suspect]
     Indication: CHEST PAIN
     Route: 065
  5. TENECTEPLASE [Suspect]
     Indication: MYOCARDIAL INFARCTION
     Route: 040
  6. ATENOLOL [Concomitant]
     Indication: DRUG USE FOR UNKNOWN INDICATION
     Route: 065
  7. DOXAZOSIN MESYLATE [Concomitant]
     Indication: DRUG USE FOR UNKNOWN INDICATION
     Route: 065
  8. NITROGLYCERIN [Concomitant]
     Indication: CHEST PAIN
     Route: 060
  9. MORPHINE [Concomitant]
     Indication: CHEST PAIN
     Route: 042
  10. SIMVASTATIN [Concomitant]
     Indication: DRUG USE FOR UNKNOWN INDICATION
     Route: 065

REACTIONS (5)
  - DRUG INEFFECTIVE [None]
  - ELECTROCARDIOGRAM ST SEGMENT ELEVATION [None]
  - HAEMATEMESIS [None]
  - HAEMORRHAGE SUBCUTANEOUS [None]
  - OBSTRUCTIVE AIRWAYS DISORDER [None]
